FAERS Safety Report 4496820-8 (Version None)
Quarter: 2004Q4

REPORT INFORMATION
  Report Type: 
  Country: None (occurrence: None)
  Receive Date: 20041109
  Receipt Date: 20041028
  Transmission Date: 20050328
  Serious: Yes (Life-Threatening, Hospitalization)
  Sender: FDA-Public Use
  Company Number: DE-JNJFOC-20040909481

PATIENT
  Age: 64 Year
  Sex: Female
  Weight: 109 kg

DRUGS (2)
  1. CAELYX [Suspect]
     Dosage: 80 MG X3 CYCLES
     Route: 042
  2. CARBOPLATIN [Suspect]
     Dosage: 451.56 MG (AUC6) X3 CYCLES
     Route: 042

REACTIONS (5)
  - ANAEMIA [None]
  - CARDIAC ARREST [None]
  - CEREBRAL INFARCTION [None]
  - CEREBRAL ISCHAEMIA [None]
  - URINARY TRACT INFECTION [None]
